FAERS Safety Report 19368715 (Version 1)
Quarter: 2021Q2

REPORT INFORMATION
  Report Type: Spontaneous
  Country: US (occurrence: US)
  Receive Date: 20210602
  Receipt Date: 20210602
  Transmission Date: 20210717
  Serious: Yes (Disabling, Other)
  Sender: FDA-Public Use
  Company Number: US-SA-2021SA181778

PATIENT
  Sex: Female

DRUGS (2)
  1. DALFAMPRIDINE. [Concomitant]
     Active Substance: DALFAMPRIDINE
  2. AUBAGIO [Suspect]
     Active Substance: TERIFLUNOMIDE
     Indication: MULTIPLE SCLEROSIS
     Dosage: UNK UNK, QD
     Route: 048
     Dates: start: 20160122

REACTIONS (4)
  - Multiple sclerosis relapse [Unknown]
  - Multiple sclerosis [Unknown]
  - Gait disturbance [Unknown]
  - Arthropathy [Unknown]

NARRATIVE: CASE EVENT DATE: 202104
